FAERS Safety Report 14570363 (Version 2)
Quarter: 2019Q2

REPORT INFORMATION
  Report Type: Spontaneous
  Country: US (occurrence: US)
  Receive Date: 20180226
  Receipt Date: 20190423
  Transmission Date: 20190711
  Serious: No
  Sender: FDA-Public Use
  Company Number: US-SHIRE-US201806792

PATIENT
  Sex: Female

DRUGS (2)
  1. AMBIEN [Concomitant]
     Active Substance: ZOLPIDEM TARTRATE
     Indication: PRODUCT USED FOR UNKNOWN INDICATION
  2. XIIDRA [Suspect]
     Active Substance: LIFITEGRAST
     Indication: DRY EYE
     Dosage: 1 GTT DROPS, 2X/DAY:BID
     Route: 047
     Dates: start: 20161226, end: 201812

REACTIONS (8)
  - Dysgeusia [Unknown]
  - Instillation site pruritus [Recovering/Resolving]
  - Visual impairment [Unknown]
  - Instillation site reaction [Unknown]
  - Instillation site discharge [Recovering/Resolving]
  - Drug ineffective [Unknown]
  - Vision blurred [Recovering/Resolving]
  - Insomnia [Unknown]
